FAERS Safety Report 4833640-6 (Version None)
Quarter: 2005Q4

REPORT INFORMATION
  Report Type: 
  Country: None (occurrence: None)
  Receive Date: 20051114
  Receipt Date: 20051031
  Transmission Date: 20060501
  Serious: Yes (Hospitalization, Other)
  Sender: FDA-Public Use
  Company Number: HQWYE342201NOV05

PATIENT
  Age: 14 Year
  Sex: Female
  Weight: 45.4 kg

DRUGS (8)
  1. EFFEXOR XR [Suspect]
     Indication: DEPRESSION
     Dosage: SEE IMAGE
     Route: 048
     Dates: end: 20040901
  2. EFFEXOR XR [Suspect]
     Indication: DEPRESSION
     Dosage: SEE IMAGE
     Route: 048
     Dates: start: 20040901, end: 20050101
  3. EFFEXOR XR [Suspect]
     Indication: DEPRESSION
     Dosage: SEE IMAGE
     Route: 048
     Dates: start: 20050101, end: 20051101
  4. EFFEXOR XR [Suspect]
     Indication: DEPRESSION
     Dosage: SEE IMAGE
     Route: 048
     Dates: start: 20051101
  5. ADDERALL 10 [Concomitant]
  6. ALLEGRA [Concomitant]
  7. CENTRUM (MULTIVITAMIN/MULTIMINERAL) [Concomitant]
  8. MELATONIN (MELATONIN) [Concomitant]

REACTIONS (5)
  - CONDITION AGGRAVATED [None]
  - DEPRESSION [None]
  - LETHARGY [None]
  - OPPOSITIONAL DEFIANT DISORDER [None]
  - SCHOOL REFUSAL [None]
